FAERS Safety Report 6073007-9 (Version None)
Quarter: 2009Q1

REPORT INFORMATION
  Report Type: 
  Country: None (occurrence: None)
  Receive Date: 20090209
  Receipt Date: 20090209
  Transmission Date: 20090719
  Serious: No
  Sender: FDA-Public Use
  Company Number: None

PATIENT
  Age: 27 Year
  Sex: Male

DRUGS (1)
  1. SULFAMETHOXAZOLE AND TRIMETHOPRIM [Suspect]
     Indication: PROPHYLAXIS
     Dosage: ORAL; 1.0 UNIT(S); 1;2
     Route: 048
     Dates: start: 20080727, end: 20080805

REACTIONS (3)
  - PYREXIA [None]
  - RASH MACULO-PAPULAR [None]
  - RASH PRURITIC [None]
